FAERS Safety Report 8473472-3 (Version None)
Quarter: 2012Q2

REPORT INFORMATION
  Report Type: 
  Country: None (occurrence: None)
  Receive Date: 20120622
  Receipt Date: 20120622
  Transmission Date: 20120825
  Serious: No
  Sender: FDA-Public Use
  Company Number: None

PATIENT
  Sex: Male
  Weight: 75.9 kg

DRUGS (2)
  1. XJADE [Concomitant]
  2. INTRON A [Suspect]
     Dosage: 300 MG
     Dates: end: 20120528

REACTIONS (2)
  - CONFUSIONAL STATE [None]
  - ASTHENIA [None]
